FAERS Safety Report 15577301 (Version 2)
Quarter: 2019Q1

REPORT INFORMATION
  Report Type: Spontaneous
  Country: AT (occurrence: AT)
  Receive Date: 20181102
  Receipt Date: 20190102
  Transmission Date: 20190417
  Serious: Yes (Other)
  Sender: FDA-Public Use
  Company Number: AT-ACCORD-067226

PATIENT
  Age: 74 Year
  Sex: Male

DRUGS (2)
  1. DOCETAXEL. [Suspect]
     Active Substance: DOCETAXEL
     Indication: LUNG ADENOCARCINOMA STAGE IV
     Dosage: 25 MG/KG
     Dates: start: 201706
  2. OFEV [Suspect]
     Active Substance: NINTEDANIB
     Indication: LUNG ADENOCARCINOMA STAGE IV
     Dates: start: 201706

REACTIONS (5)
  - Nail disorder [Unknown]
  - Chronic obstructive pulmonary disease [Unknown]
  - Asthenia [Unknown]
  - Alopecia [Unknown]
  - Condition aggravated [Unknown]

NARRATIVE: CASE EVENT DATE: 2017
